FAERS Safety Report 18248832 (Version 1)
Quarter: 2020Q3

REPORT INFORMATION
  Report Type: Spontaneous
  Country: US (occurrence: US)
  Receive Date: 20200909
  Receipt Date: 20200909
  Transmission Date: 20201103
  Serious: No
  Sender: FDA-Public Use
  Company Number: US-PFIZER INC-2020340958

PATIENT
  Age: 12 Year
  Sex: Male
  Weight: 60.3 kg

DRUGS (2)
  1. BICILLIN L?A [Suspect]
     Active Substance: PENICILLIN G BENZATHINE
     Indication: RHEUMATIC HEART DISEASE
     Dosage: UNK (RECEIVED THE FIRST INJECTION OF A 5 SERIES A 1 MONTH AGO)
     Dates: start: 2020, end: 2020
  2. BICILLIN L?A [Suspect]
     Active Substance: PENICILLIN G BENZATHINE
     Dosage: UNK(1.2MILLION PER 2ML UNIT PREFILLED SYRINGE, INJECTION RIGHT DELTOID ONCE EVERY 4 WEEKS)

REACTIONS (2)
  - Injection site pain [Unknown]
  - Product administered at inappropriate site [Unknown]

NARRATIVE: CASE EVENT DATE: 20200803
